FAERS Safety Report 21321959 (Version 1)
Quarter: 2022Q3

REPORT INFORMATION
  Report Type: Spontaneous
  Country: US (occurrence: None)
  Receive Date: 20220909
  Receipt Date: 20220909
  Transmission Date: 20221027
  Serious: No
  Sender: FDA-Public Use
  Company Number: None

PATIENT
  Age: 53 Year
  Sex: Female
  Weight: 89.1 kg

DRUGS (5)
  1. PAXLOVID [Suspect]
     Active Substance: NIRMATRELVIR\RITONAVIR
     Indication: COVID-19
     Dosage: FREQUENCY : TWICE A DAY;?
     Route: 048
     Dates: start: 20220908, end: 20220909
  2. LIPITOR [Concomitant]
     Active Substance: ATORVASTATIN CALCIUM
  3. VITAMIN D2 [Concomitant]
     Active Substance: ERGOCALCIFEROL
  4. CYMBALTA [Concomitant]
     Active Substance: DULOXETINE HYDROCHLORIDE
  5. XENICAL [Concomitant]
     Active Substance: ORLISTAT

REACTIONS (6)
  - Diarrhoea [None]
  - Taste disorder [None]
  - Nausea [None]
  - Muscle spasms [None]
  - Asthenia [None]
  - Product complaint [None]

NARRATIVE: CASE EVENT DATE: 20220908
